FAERS Safety Report 7502284-X (Version None)
Quarter: 2011Q2

REPORT INFORMATION
  Report Type: 
  Country: None (occurrence: None)
  Receive Date: 20110525
  Receipt Date: 20110502
  Transmission Date: 20111010
  Serious: Yes (Other)
  Sender: FDA-Public Use
  Company Number: US-BAYER-201042085NA

PATIENT
  Age: 20 Year
  Sex: Female
  Weight: 59 kg

DRUGS (7)
  1. VALTREX [Concomitant]
     Dosage: UNK
     Dates: start: 20080225, end: 20080904
  2. YAZ [Suspect]
     Indication: MENSTRUATION IRREGULAR
  3. YAZ [Suspect]
     Indication: CONTRACEPTION
     Dosage: 1 DF, QD
     Route: 048
     Dates: start: 20060101, end: 20090101
  4. LO/OVRAL [Concomitant]
     Indication: PRODUCT USED FOR UNKNOWN INDICATION
     Dosage: UNK
     Dates: start: 20050614, end: 20061031
  5. PERCOCET [Concomitant]
     Indication: PAIN
  6. YASMIN [Suspect]
     Indication: CONTRACEPTION
     Dosage: UNK
     Dates: start: 20060101, end: 20090101
  7. YASMIN [Suspect]
     Indication: MENSTRUATION IRREGULAR

REACTIONS (5)
  - NEPHROLITHIASIS [None]
  - CHOLELITHIASIS [None]
  - CHOLECYSTITIS CHRONIC [None]
  - CALCULUS URETHRAL [None]
  - PANCREATIC NEUROENDOCRINE TUMOUR [None]
